FAERS Safety Report 8123371-1 (Version None)
Quarter: 2012Q1

REPORT INFORMATION
  Report Type: 
  Country: None (occurrence: None)
  Receive Date: 20120208
  Receipt Date: 20120201
  Transmission Date: 20120608
  Serious: Yes (Other)
  Sender: FDA-Public Use
  Company Number: US-PFIZER INC-2012012312

PATIENT
  Sex: Female
  Weight: 41 kg

DRUGS (2)
  1. XALATAN [Suspect]
     Indication: GLAUCOMA
     Dosage: ONE DROP IN EACH EYE (OU) DAILY AT BEDTIME (HS)
     Route: 047
     Dates: start: 20020501
  2. LEVOTHYROXINE [Concomitant]
     Indication: THYROID DISORDER
     Dosage: 50MCG DAILY

REACTIONS (1)
  - HEARING IMPAIRED [None]
